FAERS Safety Report 8926426 (Version 2)
Quarter: 2013Q1

REPORT INFORMATION
  Report Type: Spontaneous
  Country: JP (occurrence: JP)
  Receive Date: 20121127
  Receipt Date: 20130124
  Transmission Date: 20140127
  Serious: Yes (Other)
  Sender: FDA-Public Use
  Company Number: JP-PFIZER INC-2012292764

PATIENT
  Age: 81 Year
  Sex: Male

DRUGS (2)
  1. UNASYN-S [Suspect]
     Dosage: 6 G/DAY
     Route: 042
     Dates: start: 20121121, end: 20121122
  2. UNASYN-S [Suspect]
     Dosage: 3 G/DAY
     Route: 042
     Dates: start: 20121122, end: 20121203

REACTIONS (1)
  - Renal failure acute [Unknown]
